FAERS Safety Report 25247801 (Version 1)
Quarter: 2025Q2

REPORT INFORMATION
  Report Type: Spontaneous
  Country: AU (occurrence: AU)
  Receive Date: 20250428
  Receipt Date: 20250428
  Transmission Date: 20250716
  Serious: Yes (Other)
  Sender: CELLTRION
  Company Number: AU-CELLTRION INC.-2025AU012279

PATIENT

DRUGS (2)
  1. INFLIXIMAB [Suspect]
     Active Substance: INFLIXIMAB
     Indication: Colitis ulcerative
     Dosage: 120 MG FORTNIGHTLY
     Route: 058
     Dates: start: 20240916
  2. INFLIXIMAB [Suspect]
     Active Substance: INFLIXIMAB
     Dosage: 120 MG FORTNIGHTLY
     Route: 058
     Dates: start: 20250411

REACTIONS (2)
  - Surgery [Recovered/Resolved]
  - Intentional dose omission [Recovered/Resolved]
